FAERS Safety Report 6049452-4 (Version None)
Quarter: 2009Q1

REPORT INFORMATION
  Report Type: 
  Country: None (occurrence: None)
  Receive Date: 20090123
  Receipt Date: 20090109
  Transmission Date: 20090719
  Serious: Yes (Hospitalization, Other)
  Sender: FDA-Public Use
  Company Number: JP-GENENTECH-269049

PATIENT
  Sex: Male
  Weight: 49.7 kg

DRUGS (13)
  1. AVASTIN [Suspect]
     Indication: COLON CANCER
     Dosage: 5 MG/KG, UNK
     Route: 041
     Dates: start: 20070703, end: 20080819
  2. FLUOROURACIL [Suspect]
     Indication: COLON CANCER RECURRENT
     Dosage: 700 MG, QD
     Route: 042
     Dates: start: 20070703
  3. ELPLAT [Suspect]
     Indication: COLON CANCER RECURRENT
     Dosage: 120 MG, QD
     Route: 042
     Dates: start: 20071113
  4. CALCIUM LEVOFOLINATE [Suspect]
     Indication: COLON CANCER RECURRENT
     Dosage: 350 MG, QD
     Route: 042
     Dates: start: 20070703
  5. MEDICATION (UNK INGREDIENT) [Suspect]
     Indication: BACK PAIN
     Dosage: UNK
     Dates: start: 20080818, end: 20080818
  6. LOXONIN [Suspect]
     Indication: BACK PAIN
     Dosage: UNK
     Dates: start: 20080819, end: 20080819
  7. KYTRIL [Concomitant]
     Indication: DRUG USE FOR UNKNOWN INDICATION
     Dosage: UNK
     Dates: start: 20071113
  8. MUCOSTA [Concomitant]
     Indication: DRUG USE FOR UNKNOWN INDICATION
     Dosage: UNK
     Dates: start: 20080819, end: 20080819
  9. ASPIRIN [Concomitant]
     Indication: DRUG USE FOR UNKNOWN INDICATION
     Dosage: UNK
  10. BUFFERIN (UNITED STATES) [Concomitant]
     Indication: DRUG USE FOR UNKNOWN INDICATION
  11. SEROTONE [Concomitant]
     Indication: DRUG USE FOR UNKNOWN INDICATION
     Dosage: UNK
     Dates: start: 20070703, end: 20071012
  12. DECADRON [Concomitant]
     Indication: DRUG USE FOR UNKNOWN INDICATION
     Dosage: UNK
     Dates: start: 20070703
  13. ZOFRAN [Concomitant]
     Indication: DRUG USE FOR UNKNOWN INDICATION
     Dosage: UNK
     Dates: start: 20071113, end: 20080115

REACTIONS (3)
  - GASTRITIS HAEMORRHAGIC [None]
  - NEUTROPHIL COUNT DECREASED [None]
  - PLATELET COUNT DECREASED [None]
